FAERS Safety Report 25212074 (Version 6)
Quarter: 2025Q4

REPORT INFORMATION
  Report Type: Spontaneous
  Country: US (occurrence: US)
  Receive Date: 20250418
  Receipt Date: 20251214
  Transmission Date: 20260118
  Serious: No
  Sender: ROCHE
  Company Number: US-ROCHE-10000254924

PATIENT
  Age: 40 Year
  Sex: Female

DRUGS (27)
  1. PERJETA [Suspect]
     Active Substance: PERTUZUMAB
     Indication: HER2 positive breast cancer
     Dosage: MAINTENANCE DOSE
  2. PERJETA [Suspect]
     Active Substance: PERTUZUMAB
  3. PERJETA [Suspect]
     Active Substance: PERTUZUMAB
     Dosage: MAINTENANCE DOSE
  4. PERJETA [Suspect]
     Active Substance: PERTUZUMAB
  5. PERJETA [Suspect]
     Active Substance: PERTUZUMAB
     Dosage: MAINTENANCE DOSE
  6. PERJETA [Suspect]
     Active Substance: PERTUZUMAB
  7. DOCETAXEL [Suspect]
     Active Substance: DOCETAXEL
     Indication: HER2 positive breast cancer
  8. DOCETAXEL [Suspect]
     Active Substance: DOCETAXEL
  9. DOCETAXEL [Suspect]
     Active Substance: DOCETAXEL
  10. DOCETAXEL [Suspect]
     Active Substance: DOCETAXEL
  11. DOCETAXEL [Suspect]
     Active Substance: DOCETAXEL
  12. DOCETAXEL [Suspect]
     Active Substance: DOCETAXEL
  13. CARBOPLATIN [Suspect]
     Active Substance: CARBOPLATIN
     Indication: HER2 positive breast cancer
  14. CARBOPLATIN [Suspect]
     Active Substance: CARBOPLATIN
  15. CARBOPLATIN [Suspect]
     Active Substance: CARBOPLATIN
  16. CARBOPLATIN [Suspect]
     Active Substance: CARBOPLATIN
  17. CARBOPLATIN [Suspect]
     Active Substance: CARBOPLATIN
  18. CARBOPLATIN [Suspect]
     Active Substance: CARBOPLATIN
  19. HERCESSI [Suspect]
     Active Substance: TRASTUZUMAB-STRF
     Indication: HER2 positive breast cancer
  20. HERCESSI [Suspect]
     Active Substance: TRASTUZUMAB-STRF
  21. HERCESSI [Suspect]
     Active Substance: TRASTUZUMAB-STRF
  22. HERCESSI [Suspect]
     Active Substance: TRASTUZUMAB-STRF
  23. HERCESSI [Suspect]
     Active Substance: TRASTUZUMAB-STRF
  24. HERCESSI [Suspect]
     Active Substance: TRASTUZUMAB-STRF
  25. GRANIX [Suspect]
     Active Substance: TBO-FILGRASTIM
     Indication: Product used for unknown indication
  26. GRANIX [Suspect]
     Active Substance: TBO-FILGRASTIM
  27. GRANIX [Suspect]
     Active Substance: TBO-FILGRASTIM

REACTIONS (13)
  - Constipation [Unknown]
  - Pain in extremity [Unknown]
  - Diarrhoea [Unknown]
  - Fatigue [Unknown]
  - Alopecia [Unknown]
  - Headache [Unknown]
  - Nausea [Unknown]
  - Myalgia [Unknown]
  - Asthenia [Unknown]
  - Back pain [Unknown]
  - Swelling [Unknown]
  - Dizziness [Unknown]
  - Fatigue [Unknown]
